FAERS Safety Report 5295805-1 (Version None)
Quarter: 2007Q2

REPORT INFORMATION
  Report Type: 
  Country: None (occurrence: None)
  Receive Date: 20070413
  Receipt Date: 20070409
  Transmission Date: 20071010
  Serious: Yes (Other)
  Sender: FDA-Public Use
  Company Number: FR-BRISTOL-MYERS SQUIBB COMPANY-13743695

PATIENT
  Age: 57 Year
  Sex: Female

DRUGS (6)
  1. IFOSFAMIDE [Interacting]
     Indication: BONE SARCOMA
     Route: 042
  2. DOXORUBICIN HCL [Suspect]
     Indication: BONE SARCOMA
  3. CISPLATIN [Suspect]
     Indication: BONE SARCOMA
  4. APREPITANT [Interacting]
     Indication: PROPHYLAXIS OF NAUSEA AND VOMITING
     Route: 048
  5. ONDANSETRON [Suspect]
     Indication: PROPHYLAXIS OF NAUSEA AND VOMITING
     Route: 042
  6. METHYLPREDNISOLONE 16MG TAB [Suspect]
     Indication: PROPHYLAXIS OF NAUSEA AND VOMITING
     Route: 042

REACTIONS (1)
  - ENCEPHALOPATHY [None]
